FAERS Safety Report 6708200-2 (Version None)
Quarter: 2010Q2

REPORT INFORMATION
  Report Type: 
  Country: None (occurrence: None)
  Receive Date: 20100503
  Receipt Date: 20090616
  Transmission Date: 20101027
  Serious: No
  Sender: FDA-Public Use
  Company Number: US-ASTRAZENECA-2009UW15405

PATIENT
  Age: 82 Year
  Sex: Female

DRUGS (4)
  1. NEXIUM [Suspect]
     Indication: HIATUS HERNIA
     Route: 048
     Dates: start: 20090604
  2. AMITRIPTYLINE [Concomitant]
  3. ZOCOR [Concomitant]
  4. VITAMINS [Concomitant]

REACTIONS (1)
  - DYSPHONIA [None]
